FAERS Safety Report 8445991-7 (Version None)
Quarter: 2012Q2

REPORT INFORMATION
  Report Type: 
  Country: None (occurrence: None)
  Receive Date: 20120618
  Receipt Date: 20120612
  Transmission Date: 20120825
  Serious: Yes (Life-Threatening, Hospitalization)
  Sender: FDA-Public Use
  Company Number: US-ASTRAZENECA-2012SE39408

PATIENT
  Age: 52 Year
  Sex: Male
  Weight: 88.9 kg

DRUGS (5)
  1. SEROQUEL [Suspect]
     Route: 048
  2. SEROQUEL [Suspect]
     Route: 048
     Dates: start: 20120208
  3. PREDNISONE [Concomitant]
  4. SEROQUEL [Suspect]
     Indication: SCHIZOPHRENIA, PARANOID TYPE
     Route: 048
     Dates: start: 20120201
  5. SEROQUEL [Suspect]
     Route: 048

REACTIONS (11)
  - COUGH [None]
  - HEPATOMEGALY [None]
  - HALLUCINATION [None]
  - SCHIZOPHRENIA [None]
  - VIRAL PERICARDITIS [None]
  - PLEURAL EFFUSION [None]
  - CORONARY ARTERY OCCLUSION [None]
  - BLOOD POTASSIUM DECREASED [None]
  - DRUG INEFFECTIVE [None]
  - COMA [None]
  - ADVERSE EVENT [None]
